FAERS Safety Report 14990859 (Version 3)
Quarter: 2018Q3

REPORT INFORMATION
  Report Type: Spontaneous
  Country: US (occurrence: US)
  Receive Date: 20180608
  Receipt Date: 20180719
  Transmission Date: 20181010
  Serious: Yes (Hospitalization)
  Sender: FDA-Public Use
  Company Number: US-VERTEX PHARMACEUTICALS-2018-003805

PATIENT
  Age: 18 Year
  Sex: Female
  Weight: 48 kg

DRUGS (33)
  1. ALBUTEROL HFA [Concomitant]
     Active Substance: ALBUTEROL SULFATE
     Indication: CYSTIC FIBROSIS LUNG
     Dosage: 2 PUFFS, Q4H, PRN
     Route: 055
     Dates: start: 2007
  2. SYMBICORT [Concomitant]
     Active Substance: BUDESONIDE\FORMOTEROL FUMARATE DIHYDRATE
     Indication: CYSTIC FIBROSIS LUNG
     Dosage: 2 PUFFS, BID
     Route: 055
     Dates: start: 2016
  3. XOPENEX [Concomitant]
     Active Substance: LEVALBUTEROL HYDROCHLORIDE
     Indication: CYSTIC FIBROSIS LUNG
     Dosage: 2 PUFFS INHALE PRIOR TO HYPERSAL
     Route: 055
     Dates: start: 2011, end: 20180529
  4. PULMICORT TURBUHALER [Concomitant]
     Active Substance: BUDESONIDE
     Indication: ASTHMA
     Dosage: 5 PUFFS, BID
     Route: 055
     Dates: start: 2017, end: 20180529
  5. CIPRO [Concomitant]
     Active Substance: CIPROFLOXACIN HYDROCHLORIDE
     Indication: INFECTIVE PULMONARY EXACERBATION OF CYSTIC FIBROSIS
     Dosage: 750 MG, BID
     Route: 048
     Dates: start: 20180216, end: 20180309
  6. KEFLEX [Concomitant]
     Active Substance: CEPHALEXIN
     Indication: INFECTIVE PULMONARY EXACERBATION OF CYSTIC FIBROSIS
     Dosage: 1000 MG, TID
     Route: 048
     Dates: start: 20180227, end: 20180313
  7. KEFLEX [Concomitant]
     Active Substance: CEPHALEXIN
     Dosage: 1000 MG, TID
     Route: 048
     Dates: start: 20180323, end: 20180406
  8. ALLEGRA [Concomitant]
     Active Substance: FEXOFENADINE HYDROCHLORIDE
     Indication: RHINITIS ALLERGIC
     Dosage: 180 MG, QD
     Route: 048
     Dates: start: 2015, end: 20180529
  9. HYPERTONIC SALINE SOLUTION [Concomitant]
     Active Substance: SODIUM CHLORIDE
     Indication: CYSTIC FIBROSIS LUNG
     Dosage: 4 MILLILITER, BID
     Route: 055
     Dates: start: 2011
  10. VITAMIN D                          /00107901/ [Concomitant]
     Active Substance: ERGOCALCIFEROL
     Indication: VITAMIN D DEFICIENCY
     Dosage: 50000 UT, WEEKLY
     Route: 048
     Dates: start: 2012, end: 20180529
  11. AZITHROMYCIN ANHYDROUS. [Concomitant]
     Active Substance: AZITHROMYCIN ANHYDROUS
     Indication: INFECTIVE PULMONARY EXACERBATION OF CYSTIC FIBROSIS
     Dosage: 40 MG, QD
     Route: 048
     Dates: start: 20180525, end: 20180529
  12. GLUCOSAMINE + CHONDROITIN TRIPLE STRENGTH [Concomitant]
     Dosage: 200 MG, QD
     Route: 048
     Dates: start: 2016
  13. ALAVERT ALLERGY [Concomitant]
     Active Substance: LORATADINE
     Dosage: 10 MG, QD
     Route: 048
     Dates: start: 20180627
  14. ZEGERID                            /00661201/ [Concomitant]
     Active Substance: OMEPRAZOLE
     Dosage: 20 UNK
     Route: 048
     Dates: start: 20180601
  15. SYMDEKO [Suspect]
     Active Substance: IVACAFTOR\TEZACAFTOR
     Indication: CYSTIC FIBROSIS
     Dosage: 100MG TEZACAFTOR/150MG IVACAFTOR AM; 150MG IVACAFTOR PM
     Route: 048
     Dates: start: 20180419, end: 20180612
  16. CAYSTON [Concomitant]
     Active Substance: AZTREONAM
     Indication: BACTERIAL DISEASE CARRIER
     Dosage: 75 MG, TID. ALTERNATE EVERY OTHER MONTH WITH TOBI
     Route: 055
     Dates: start: 2011
  17. CREON [Concomitant]
     Active Substance: PANCRELIPASE AMYLASE\PANCRELIPASE LIPASE\PANCRELIPASE PROTEASE
     Indication: PANCREATIC FAILURE
     Dosage: 3 CAPS WITH MEALS AND 2 WITH SNACKS
     Route: 048
     Dates: start: 2013
  18. AZITHROMYCIN ANHYDROUS. [Concomitant]
     Active Substance: AZITHROMYCIN ANHYDROUS
     Indication: CYSTIC FIBROSIS LUNG
     Dosage: 500 MG 3 TIMES A WEEK
     Route: 048
     Dates: start: 2008
  19. CAYSTON [Concomitant]
     Active Substance: AZTREONAM
     Indication: CYSTIC FIBROSIS LUNG
     Dosage: 75 MG, TID
     Route: 055
     Dates: start: 20180307, end: 20180403
  20. CAYSTON [Concomitant]
     Active Substance: AZTREONAM
     Dosage: 75 MG, TID
     Route: 055
     Dates: start: 20180502, end: 20180529
  21. COENZYME Q10 [Concomitant]
     Active Substance: UBIDECARENONE
     Dosage: 300 MG, QD
     Route: 048
     Dates: start: 2011
  22. PULMOZYME [Concomitant]
     Active Substance: DORNASE ALFA
     Indication: CYSTIC FIBROSIS LUNG
     Dosage: 2.5 MG, BID
     Route: 055
     Dates: start: 2007
  23. FLONASE                            /00908302/ [Concomitant]
     Active Substance: MOMETASONE FUROATE
     Indication: RHINITIS ALLERGIC
     Dosage: 2 SPRAYS EACH NARE, BID
     Route: 045
     Dates: start: 2016
  24. ZEGERID                            /00661201/ [Concomitant]
     Active Substance: OMEPRAZOLE
     Indication: GASTROOESOPHAGEAL REFLUX DISEASE
     Dosage: 20 MG, QD
     Route: 048
     Dates: start: 2010, end: 20180529
  25. TOBI [Concomitant]
     Active Substance: TOBRAMYCIN
     Indication: CYSTIC FIBROSIS LUNG
     Dosage: 28 MG, TID
     Route: 055
     Dates: start: 20180404, end: 20180501
  26. PSYLLIUM                           /01328801/ [Concomitant]
     Active Substance: PLANTAGO SEED
     Dosage: 2 TSP, QD, PRN
     Route: 048
  27. TOBI [Concomitant]
     Active Substance: TOBRAMYCIN
     Indication: BACTERIAL DISEASE CARRIER
     Dosage: 28 MG, BID. ALTERNATE EVERY OTHER MONTH WITH CAYSTON.
     Route: 055
     Dates: start: 2013
  28. CIPRO [Concomitant]
     Active Substance: CIPROFLOXACIN HYDROCHLORIDE
     Dosage: 750 MG, BID
     Route: 048
     Dates: start: 20180323, end: 20180406
  29. PROVENTIL [Concomitant]
     Active Substance: ALBUTEROL
     Indication: CYSTIC FIBROSIS LUNG
     Dosage: 3 MILLILITER, Q4H, PRN
     Route: 055
     Dates: start: 20180525
  30. PEDIASURE                          /07459601/ [Concomitant]
     Dosage: 2?3 CANS
     Route: 048
     Dates: start: 20180530, end: 20180601
  31. IBUPROFEN. [Concomitant]
     Active Substance: IBUPROFEN
     Indication: HEADACHE
     Dosage: 200 MG PRN
     Route: 048
     Dates: start: 2007
  32. VITAMIN E                          /00110502/ [Concomitant]
     Dosage: 400 INTERNATIONAL UNIT, QD
     Route: 048
     Dates: start: 2013
  33. IMODIUM [Concomitant]
     Active Substance: LOPERAMIDE HYDROCHLORIDE
     Dosage: 2 MG, 1?3 TIMES A DAY, AS NEEDED
     Route: 048
     Dates: start: 20180615

REACTIONS (2)
  - Infective pulmonary exacerbation of cystic fibrosis [Not Recovered/Not Resolved]
  - Pneumonia [Unknown]

NARRATIVE: CASE EVENT DATE: 20180420
